FAERS Safety Report 6222685-X (Version None)
Quarter: 2009Q2

REPORT INFORMATION
  Report Type: 
  Country: None (occurrence: None)
  Receive Date: 20090611
  Receipt Date: 20090608
  Transmission Date: 20091009
  Serious: Yes (Other)
  Sender: FDA-Public Use
  Company Number: US-ROXANE LABORATORIES, INC.-2009-RO-00570RO

PATIENT
  Age: 38 Year
  Sex: Female

DRUGS (6)
  1. MYCOPHENOLATE MOFETIL [Suspect]
     Indication: PROPHYLAXIS AGAINST TRANSPLANT REJECTION
     Dates: start: 19991101
  2. MYCOPHENOLATE MOFETIL [Suspect]
     Dates: start: 20021101
  3. MYCOPHENOLATE MOFETIL [Suspect]
     Dates: start: 20030101
  4. CYCLOSPORINE [Suspect]
     Indication: PROPHYLAXIS AGAINST TRANSPLANT REJECTION
     Dates: start: 19991101
  5. CYCLOSPORINE [Suspect]
     Dates: start: 20030101
  6. SIROLIMUS [Suspect]
     Indication: PROPHYLAXIS AGAINST TRANSPLANT REJECTION
     Dates: start: 20021101, end: 20030101

REACTIONS (5)
  - CHRONIC ALLOGRAFT NEPHROPATHY [None]
  - FOCAL SEGMENTAL GLOMERULOSCLEROSIS [None]
  - KIDNEY TRANSPLANT REJECTION [None]
  - NEPHROSCLEROSIS [None]
  - PROTEINURIA [None]
